FAERS Safety Report 5640649-1 (Version None)
Quarter: 2008Q1

REPORT INFORMATION
  Report Type: 
  Country: None (occurrence: None)
  Receive Date: 20080227
  Receipt Date: 20080221
  Transmission Date: 20080703
  Serious: Yes (Other)
  Sender: FDA-Public Use
  Company Number: A0685130A

PATIENT
  Age: 36 Year
  Sex: Female

DRUGS (1)
  1. ALLI [Suspect]
     Indication: WEIGHT CONTROL
     Dates: start: 20070401, end: 20080101

REACTIONS (8)
  - ABDOMINAL PAIN UPPER [None]
  - CHANGE OF BOWEL HABIT [None]
  - CHEST DISCOMFORT [None]
  - CHOLELITHIASIS [None]
  - DRUG INEFFECTIVE [None]
  - GALLBLADDER DISORDER [None]
  - HEPATIC ENZYME INCREASED [None]
  - WEIGHT DECREASED [None]
